FAERS Safety Report 5266813-1 (Version None)
Quarter: 2007Q1

REPORT INFORMATION
  Report Type: 
  Country: None (occurrence: None)
  Receive Date: 20061213
  Receipt Date: 20030218
  Transmission Date: 20070707
  Serious: No
  Sender: FDA-Public Use
  Company Number: 2002UW15841

PATIENT
  Age: 66 Year
  Sex: Female
  Weight: 81.6475 kg

DRUGS (2)
  1. ARIMIDEX [Suspect]
     Indication: BREAST CANCER
     Dosage: 1 MG DAILY PO
     Route: 048
     Dates: start: 19971217
  2. NOLVADEX [Suspect]
     Indication: BREAST CANCER
     Dosage: 20 MG DAILY PO
     Route: 048
     Dates: start: 19971217

REACTIONS (1)
  - CATARACT [None]
